FAERS Safety Report 7277512-9 (Version None)
Quarter: 2011Q1

REPORT INFORMATION
  Report Type: 
  Country: None (occurrence: None)
  Receive Date: 20110207
  Receipt Date: 20110127
  Transmission Date: 20110831
  Serious: Yes (Life-Threatening, Hospitalization)
  Sender: FDA-Public Use
  Company Number: JP-BRISTOL-MYERS SQUIBB COMPANY-15412117

PATIENT
  Age: 80 Year
  Sex: Female
  Weight: 40 kg

DRUGS (21)
  1. SELBEX [Concomitant]
     Dosage: FINE GRANULE
  2. LANATOSIDE C [Concomitant]
     Indication: TACHYARRHYTHMIA
     Dosage: FORM:INJ
     Dates: start: 20100727, end: 20100727
  3. SLOW-K [Suspect]
     Dosage: TABS
     Dates: end: 20100909
  4. ALFAROL [Concomitant]
     Dosage: CAPS
  5. VERAPAMIL HCL [Concomitant]
     Indication: TACHYARRHYTHMIA
     Dosage: TABS
  6. METHYCOBAL [Concomitant]
     Indication: NEUROPATHY PERIPHERAL
     Dosage: TABLET
     Route: 048
     Dates: start: 20100725
  7. OLMETEC [Concomitant]
     Indication: HYPERTENSION
     Dosage: TABS
  8. PERSANTIN [Concomitant]
     Dosage: TABS
  9. SUNRYTHM [Concomitant]
     Indication: TACHYARRHYTHMIA
     Dosage: FORM:INJ
     Dates: start: 20100727, end: 20100727
  10. MARZULENE-S [Concomitant]
     Dosage: GRANULE
  11. LANDIOLOL HCL [Concomitant]
     Indication: TACHYARRHYTHMIA
     Dosage: ONOACT FORM:INJ
     Dates: start: 20100627, end: 20100627
  12. DESLANOSIDE [Concomitant]
     Indication: TACHYARRHYTHMIA
     Dosage: DIGILANOGEN FORM:INJ
     Dates: start: 20100627, end: 20100627
  13. CIBENOL TABS [Suspect]
     Indication: TACHYARRHYTHMIA
     Dosage: UNK:29JUL10 50MG UID/QD 30JUL10:10SEP10(43D):DOSE INCREASED TO 50MG BID
     Route: 048
     Dates: end: 20100910
  14. WARFARIN SODIUM [Suspect]
     Dosage: TABS UNK:9SEP10 RESTARTED ON 17SEP10(1 TAB/D)
  15. LOXONIN [Concomitant]
     Dosage: TABS
     Dates: end: 20100909
  16. OPALMON [Concomitant]
     Dosage: TABS
  17. LANIRAPID [Concomitant]
     Indication: TACHYARRHYTHMIA
     Dosage: TABS
     Route: 048
     Dates: start: 20100730
  18. MAGLAX [Concomitant]
     Indication: CONSTIPATION
     Dosage: TABS
     Dates: start: 20100810
  19. DISOPYRAMIDE PHOSPHATE [Concomitant]
     Indication: TACHYARRHYTHMIA
     Dosage: FORM:INJ
     Dates: start: 20100627, end: 20100730
  20. VERAPAMIL HCL [Concomitant]
     Dosage: FORM:INJ
     Dates: start: 20100727, end: 20100727
  21. CRAVIT [Concomitant]
     Indication: URINARY TRACT INFECTION
     Dosage: TABS
     Dates: start: 20100915, end: 20100919

REACTIONS (8)
  - CONSTIPATION [None]
  - FEMUR FRACTURE [None]
  - RENAL IMPAIRMENT [None]
  - URINARY TRACT INFECTION [None]
  - HYPOGLYCAEMIA [None]
  - BLOOD POTASSIUM INCREASED [None]
  - NEUROPATHY PERIPHERAL [None]
  - INTERNATIONAL NORMALISED RATIO INCREASED [None]
